FAERS Safety Report 18237399 (Version 1)
Quarter: 2020Q3

REPORT INFORMATION
  Report Type: Spontaneous
  Country: CA (occurrence: CA)
  Receive Date: 20200907
  Receipt Date: 20200907
  Transmission Date: 20201103
  Serious: Yes (Other)
  Sender: FDA-Public Use
  Company Number: CA-ACCORD-199558

PATIENT
  Age: 35 Year
  Sex: Female

DRUGS (19)
  1. CETIRIZINE [Concomitant]
     Active Substance: CETIRIZINE HYDROCHLORIDE
  2. ARAVA [Suspect]
     Active Substance: LEFLUNOMIDE
     Indication: PRODUCT USED FOR UNKNOWN INDICATION
     Route: 065
  3. ERGOCALCIFEROL. [Concomitant]
     Active Substance: ERGOCALCIFEROL
  4. OXYNEO [Concomitant]
     Active Substance: OXYCODONE
  5. DEPO?MEDRO [Concomitant]
     Route: 014
  6. ESOMEPRAZOLE. [Concomitant]
     Active Substance: ESOMEPRAZOLE MAGNESIUM
  7. ALITRETINOIN [Concomitant]
     Active Substance: ALITRETINOIN
  8. METHOTREXATE. [Suspect]
     Active Substance: METHOTREXATE
     Indication: PRODUCT USED FOR UNKNOWN INDICATION
     Route: 065
  9. LEVOTHYROXINE. [Concomitant]
     Active Substance: LEVOTHYROXINE
  10. ADALIMUMAB [Suspect]
     Active Substance: ADALIMUMAB
     Indication: PRODUCT USED FOR UNKNOWN INDICATION
     Dosage: SOLUTION SUBCUTANEOUS
     Route: 058
  11. BLEXTEN [Concomitant]
     Active Substance: BILASTINE
     Route: 065
  12. HYDROCHLOROTHIAZIDE. [Concomitant]
     Active Substance: HYDROCHLOROTHIAZIDE
  13. ATORVASTATIN [Concomitant]
     Active Substance: ATORVASTATIN
  14. OXYCODONE [Concomitant]
     Active Substance: OXYCODONE
     Route: 065
  15. SINGULAIR [Concomitant]
     Active Substance: MONTELUKAST SODIUM
  16. ETANERCEPT [Suspect]
     Active Substance: ETANERCEPT
     Indication: PRODUCT USED FOR UNKNOWN INDICATION
     Route: 065
  17. ZYLOPRIM [Concomitant]
     Active Substance: ALLOPURINOL
  18. DOXEPIN [Concomitant]
     Active Substance: DOXEPIN
  19. LYRICA [Concomitant]
     Active Substance: PREGABALIN

REACTIONS (45)
  - Blood creatinine abnormal [Unknown]
  - Headache [Unknown]
  - Urinary tract infection [Unknown]
  - Allergic oedema [Unknown]
  - Asthma [Unknown]
  - Diverticulum oesophageal [Unknown]
  - Drug hypersensitivity [Unknown]
  - Dysphagia [Unknown]
  - Mandibular mass [Unknown]
  - Migraine [Unknown]
  - Musculoskeletal stiffness [Unknown]
  - Rash [Unknown]
  - Synovitis [Unknown]
  - Tenderness [Unknown]
  - C-reactive protein abnormal [Unknown]
  - Arthritis [Unknown]
  - Eczema [Unknown]
  - White blood cell count decreased [Unknown]
  - Osteoporosis [Unknown]
  - Pain in extremity [Unknown]
  - Rectal haemorrhage [Unknown]
  - Rotator cuff syndrome [Unknown]
  - Vomiting [Unknown]
  - Constipation [Unknown]
  - Hypertension [Unknown]
  - Joint effusion [Unknown]
  - Musculoskeletal pain [Unknown]
  - Sarcoidosis [Unknown]
  - Skin erosion [Unknown]
  - Drug ineffective [Unknown]
  - Arthralgia [Unknown]
  - Dry mouth [Unknown]
  - Lymphoma [Unknown]
  - Neck mass [Unknown]
  - Osteosclerosis [Unknown]
  - Peripheral swelling [Unknown]
  - Swelling [Unknown]
  - Cough [Unknown]
  - Diarrhoea [Unknown]
  - Drug intolerance [Unknown]
  - Dyshidrotic eczema [Unknown]
  - Lipoma [Unknown]
  - Lymphadenopathy [Unknown]
  - Lymphadenopathy mediastinal [Unknown]
  - Therapeutic product effect incomplete [Unknown]
